FAERS Safety Report 9946579 (Version 2)
Quarter: 2014Q1

REPORT INFORMATION
  Report Type: Report from Study
  Country: US (occurrence: US)
  Receive Date: 20140303
  Receipt Date: 20140328
  Transmission Date: 20141002
  Serious: Yes (Other)
  Sender: FDA-Public Use
  Company Number: US-ABBVIE-14P-163-1206176-00

PATIENT
  Age: 13 Year
  Sex: Male

DRUGS (6)
  1. HUMIRA [Suspect]
     Indication: CROHN^S DISEASE
     Dosage: LOADING DOSE
     Dates: start: 200811, end: 200811
  2. HUMIRA [Suspect]
     Dates: start: 20140218
  3. FERROUS SULFATE [Concomitant]
     Indication: PRODUCT USED FOR UNKNOWN INDICATION
  4. CALCIUM [Concomitant]
     Indication: PRODUCT USED FOR UNKNOWN INDICATION
  5. CIMZIA [Concomitant]
     Indication: CROHN^S DISEASE
     Dosage: AFTER FEEDING TUBE PLACED
     Dates: end: 20140124
  6. METHOTREXATE [Concomitant]
     Indication: CROHN^S DISEASE
     Dosage: AFTER FEEDING TUBE PLACED

REACTIONS (4)
  - Malnutrition [Unknown]
  - Drug ineffective [Recovered/Resolved]
  - Colostomy [Unknown]
  - Gastrointestinal tube insertion [Unknown]
